FAERS Safety Report 19389642 (Version 2)
Quarter: 2021Q2

REPORT INFORMATION
  Report Type: Spontaneous
  Country: JP (occurrence: JP)
  Receive Date: 20210608
  Receipt Date: 20210625
  Transmission Date: 20210717
  Serious: Yes (Hospitalization)
  Sender: FDA-Public Use
  Company Number: JP-ELI_LILLY_AND_COMPANY-JP202105013556

PATIENT
  Age: 43 Year
  Sex: Female

DRUGS (13)
  1. IMIGRAN [SUMATRIPTAN SUCCINATE] [Concomitant]
     Active Substance: SUMATRIPTAN SUCCINATE
     Indication: HEADACHE
     Route: 058
  2. OLOPATADINE. [Concomitant]
     Active Substance: OLOPATADINE
     Indication: URTICARIA
  3. MEXITIL [Concomitant]
     Active Substance: MEXILETINE HYDROCHLORIDE
     Dosage: 100 MG, BID
     Route: 048
  4. RINDERON [BETAMETHASONE] [Concomitant]
     Active Substance: BETAMETHASONE
     Indication: NERVE BLOCK
  5. EMGALITY [Suspect]
     Active Substance: GALCANEZUMAB-GNLM
     Dosage: 120 MG
     Route: 058
     Dates: start: 20210525, end: 20210525
  6. VIMPAT [Concomitant]
     Active Substance: LACOSAMIDE
     Dosage: 50 MG, EACH EVENING
     Route: 048
  7. VASOLAN [VERAPAMIL HYDROCHLORIDE] [Concomitant]
     Active Substance: VERAPAMIL HYDROCHLORIDE
     Dosage: 80 MG, TID
     Route: 048
  8. EMGALITY [Suspect]
     Active Substance: GALCANEZUMAB-GNLM
     Indication: MIGRAINE
     Dosage: 240 MG
     Route: 058
     Dates: start: 20210427, end: 20210427
  9. TEGRETOL [Concomitant]
     Active Substance: CARBAMAZEPINE
     Dosage: 100 MG, DAILY
     Route: 048
  10. NEXIUM [Concomitant]
     Active Substance: ESOMEPRAZOLE MAGNESIUM
     Dosage: 20 MG, EACH MORNING
     Route: 048
  11. POPSCAINE [Concomitant]
     Active Substance: LEVOBUPIVACAINE HYDROCHLORIDE
     Indication: NERVE BLOCK
  12. MAGMITT [Concomitant]
     Active Substance: MAGNESIUM OXIDE
     Dosage: 330 MG, BID
     Route: 048
  13. XYLOCAINE WITH EPINEPHRINE [Concomitant]
     Active Substance: EPINEPHRINE BITARTRATE\LIDOCAINE HYDROCHLORIDE
     Indication: NERVE BLOCK

REACTIONS (3)
  - Pruritus [Unknown]
  - Sinus tachycardia [Unknown]
  - Anaphylactic reaction [Unknown]

NARRATIVE: CASE EVENT DATE: 20210429
